FAERS Safety Report 10167858 (Version 1)
Quarter: 2014Q2

REPORT INFORMATION
  Report Type: Report from Study
  Country: AR (occurrence: AR)
  Receive Date: 20140512
  Receipt Date: 20140512
  Transmission Date: 20141212
  Serious: Yes (Other)
  Sender: FDA-Public Use
  Company Number: PHHY2014AR057241

PATIENT
  Sex: Male

DRUGS (3)
  1. DIOVAN [Suspect]
     Indication: HYPERTENSION
     Dosage: 160 MG, UNK
     Route: 048
  2. DIOVAN [Suspect]
     Dosage: 320 MG, UNK
  3. EXFORGE [Suspect]
     Indication: HYPERTENSION
     Dosage: 1 DF (320/5), UNK
     Route: 048

REACTIONS (1)
  - Renal neoplasm [Recovered/Resolved]
